FAERS Safety Report 6942860-6 (Version None)
Quarter: 2010Q3

REPORT INFORMATION
  Report Type: 
  Country: None (occurrence: None)
  Receive Date: 20100826
  Receipt Date: 20100812
  Transmission Date: 20110219
  Serious: Yes (Hospitalization)
  Sender: FDA-Public Use
  Company Number: GB-ELI_LILLY_AND_COMPANY-GB201008003644

PATIENT
  Age: 37 Year
  Sex: Male

DRUGS (2)
  1. ZYPADHERA [Suspect]
     Dosage: UNK, EVERY 2 WEEKS
     Route: 065
     Dates: start: 20100601
  2. RISPERDAL CONSTA [Concomitant]
     Dosage: UNK, UNKNOWN
     Route: 065

REACTIONS (2)
  - DEEP VEIN THROMBOSIS [None]
  - PULMONARY EMBOLISM [None]
